FAERS Safety Report 23364808 (Version 2)
Quarter: 2024Q1

REPORT INFORMATION
  Report Type: Spontaneous
  Country: CA (occurrence: CA)
  Receive Date: 20240104
  Receipt Date: 20240114
  Transmission Date: 20240410
  Serious: Yes (Hospitalization, Other)
  Sender: FDA-Public Use
  Company Number: CA-CELLTRION INC.-2023CA025272

PATIENT

DRUGS (5)
  1. INFLECTRA [Suspect]
     Active Substance: INFLIXIMAB-DYYB
     Indication: Crohn^s disease
     Dosage: 10 MG/KG, EVERY 8 WEEKS
     Route: 042
     Dates: start: 20230915
  2. INFLECTRA [Suspect]
     Active Substance: INFLIXIMAB-DYYB
     Dosage: 10 MG/KG, EVERY 8 WEEKS
     Route: 042
     Dates: start: 20231025
  3. INFLECTRA [Suspect]
     Active Substance: INFLIXIMAB-DYYB
     Dosage: 10 MG/KG (950 MG), AFTER 10 WEEKS AND 2 DAYS (PRESCRIBED WAS EVERY 8 WEEKS)
     Route: 042
     Dates: start: 20240105
  4. AMOXYCLAV RBX [Concomitant]
     Dosage: 1 DF
     Dates: start: 20230801
  5. IMODIUM [Concomitant]
     Active Substance: LOPERAMIDE HYDROCHLORIDE
     Dosage: 1 DF
     Dates: start: 20230801

REACTIONS (2)
  - Ileostomy [Unknown]
  - Ileostomy closure [Recovering/Resolving]

NARRATIVE: CASE EVENT DATE: 20230101
